FAERS Safety Report 9817522 (Version 2)
Quarter: 2014Q1

REPORT INFORMATION
  Report Type: Spontaneous
  Country: BR (occurrence: BR)
  Receive Date: 20140115
  Receipt Date: 20140115
  Transmission Date: 20141002
  Serious: Yes (Other)
  Sender: FDA-Public Use
  Company Number: BR-AMGEN-BRASP2012011408

PATIENT
  Age: 56 Year
  Sex: Female
  Weight: 80 kg

DRUGS (7)
  1. ENBREL [Suspect]
     Indication: RHEUMATOID ARTHRITIS
     Dosage: 50 MG, WEEKLY
     Route: 058
     Dates: start: 201009
  2. ENBREL [Suspect]
     Dosage: 50 MG, ONCE WEEKLY
     Route: 058
     Dates: start: 201201, end: 201311
  3. ENBREL [Suspect]
     Dosage: 50 MG, WEEKLY
     Route: 058
  4. LOSARTAN POTASSIUM [Concomitant]
     Dosage: UNK
  5. HYDROCHLOROTHIAZIDE [Concomitant]
     Dosage: STRENGTH 25MG, AT UNSPECIFIED DOSE ONCE DAILY
  6. BI-PROFENID [Concomitant]
     Indication: PAIN
     Dosage: UNK
  7. METHOTREXATE [Concomitant]
     Dosage: 2.5 MG, ONCE WEEKLY

REACTIONS (4)
  - Rheumatoid arthritis [Unknown]
  - Condition aggravated [Unknown]
  - Bone pain [Unknown]
  - Injection site pain [Unknown]
